FAERS Safety Report 19590690 (Version 11)
Quarter: 2022Q1

REPORT INFORMATION
  Report Type: Spontaneous
  Country: PL (occurrence: PL)
  Receive Date: 20210721
  Receipt Date: 20220309
  Transmission Date: 20220424
  Serious: Yes (Hospitalization, Other)
  Sender: FDA-Public Use
  Company Number: PL-002147023-NVSC2021PL140813

PATIENT
  Age: 62 Year
  Sex: Male
  Weight: 98 kg

DRUGS (23)
  1. PANTOPRAZOLE [Suspect]
     Active Substance: PANTOPRAZOLE
     Dosage: 20 MILLIGRAM, QD
     Route: 065
  2. AMLODIPINE BESYLATE [Suspect]
     Active Substance: AMLODIPINE BESYLATE
     Dosage: 10 MILLIGRAM, QD
     Route: 065
  3. ASPIRIN [Suspect]
     Active Substance: ASPIRIN
     Indication: Hypertension
     Dosage: 75 MILLIGRAM, QD
     Route: 065
  4. ESOMEPRAZOLE SODIUM [Suspect]
     Active Substance: ESOMEPRAZOLE SODIUM
     Indication: Renal failure
     Dosage: 20 MILLIGRAM
     Route: 065
  5. RAMIPRIL [Suspect]
     Active Substance: RAMIPRIL
     Indication: Cardiac failure
     Dosage: 10 MILLIGRAM
     Route: 065
  6. RAMIPRIL [Suspect]
     Active Substance: RAMIPRIL
     Indication: Coronary artery disease
     Dosage: UNK
     Route: 065
  7. BISOPROLOL FUMARATE [Suspect]
     Active Substance: BISOPROLOL FUMARATE
     Indication: Coronary artery disease
     Dosage: UNK
     Route: 065
  8. METFORMIN HYDROCHLORIDE [Suspect]
     Active Substance: METFORMIN HYDROCHLORIDE
     Dosage: 850 MILLIGRAM, TID
     Route: 065
  9. METFORMIN HYDROCHLORIDE [Suspect]
     Active Substance: METFORMIN HYDROCHLORIDE
     Dosage: 2550 MILLIGRAM, QD
     Route: 065
  10. LINAGLIPTIN [Suspect]
     Active Substance: LINAGLIPTIN
     Dosage: 5 MILLIGRAM, QD
     Route: 065
  11. TELMISARTAN [Suspect]
     Active Substance: TELMISARTAN
     Dosage: 80 MILLIGRAM, QD
     Route: 065
  12. ROSUVASTATIN [Suspect]
     Active Substance: ROSUVASTATIN
     Indication: Carotid arteriosclerosis
     Dosage: 10 MILLIGRAM, QD
     Route: 065
  13. ROSUVASTATIN [Suspect]
     Active Substance: ROSUVASTATIN
     Dosage: 40 MILLIGRAM
     Route: 065
  14. FENOBIBRATE [Suspect]
     Active Substance: FENOFIBRATE
     Dosage: 215 MILLIGRAM, QD
     Route: 065
  15. HYDROCHLOROTHIAZIDE [Suspect]
     Active Substance: HYDROCHLOROTHIAZIDE
     Dosage: 12.5 MILLIGRAM, QD
     Route: 065
  16. CARVEDILOL [Suspect]
     Active Substance: CARVEDILOL
     Dosage: 12.5 MILLIGRAM, QD
     Route: 065
  17. FLUTICASONE PROPIONATE\SALMETEROL XINAFOATE [Suspect]
     Active Substance: FLUTICASONE PROPIONATE\SALMETEROL XINAFOATE
     Dosage: 2 DF (250 ?G +50 UG) INHALATION
     Route: 055
  18. FLUTICASONE PROPIONATE\SALMETEROL XINAFOATE [Suspect]
     Active Substance: FLUTICASONE PROPIONATE\SALMETEROL XINAFOATE
     Dosage: 250/50 MICROGRAM
     Route: 055
  19. TRIMETAZIDINE DIHYDROCHLORIDE [Suspect]
     Active Substance: TRIMETAZIDINE DIHYDROCHLORIDE
     Dosage: 40 MILLIGRAM, QD
     Route: 065
  20. CARVEDILOL [Suspect]
     Active Substance: CARVEDILOL
     Dosage: 12.5 MILLIGRAM, BID
     Route: 065
  21. CARVEDILOL [Suspect]
     Active Substance: CARVEDILOL
     Dosage: 12.5 MILLIGRAM, QD
     Route: 065
  22. ESOMEPRAZOLE [Concomitant]
     Active Substance: ESOMEPRAZOLE
     Dosage: UNK
  23. CLOPIDOGREL BISULFATE [Concomitant]
     Active Substance: CLOPIDOGREL BISULFATE
     Indication: Postoperative care
     Dosage: 75 MILLIGRAM

REACTIONS (49)
  - Intestinal obstruction [Unknown]
  - Hypotension [Unknown]
  - Fatigue [Unknown]
  - Cardiac failure [Unknown]
  - Syncope [Unknown]
  - Ventricular arrhythmia [Unknown]
  - Ventricular tachycardia [Unknown]
  - Cardiomegaly [Unknown]
  - Supraventricular tachycardia [Unknown]
  - Diastolic dysfunction [Unknown]
  - Electrocardiogram QT prolonged [Unknown]
  - Tricuspid valve incompetence [Unknown]
  - Mitral valve incompetence [Unknown]
  - Electrocardiogram Q wave abnormal [Unknown]
  - Coronary artery disease [Unknown]
  - Carotid artery stenosis [Unknown]
  - Acute kidney injury [Unknown]
  - Asthenia [Unknown]
  - Occult blood [Unknown]
  - Oedema peripheral [Unknown]
  - Palpitations [Unknown]
  - Chronic kidney disease [Unknown]
  - Acute myocardial infarction [Unknown]
  - Carotid arteriosclerosis [Unknown]
  - Hyperlipidaemia [Unknown]
  - Pericardial effusion [Unknown]
  - Hepatojugular reflux [Unknown]
  - Ventricular hypokinesia [Unknown]
  - Dyspnoea at rest [Unknown]
  - Helicobacter gastritis [Unknown]
  - Systolic dysfunction [Unknown]
  - Angiopathy [Unknown]
  - Aortic valve incompetence [Unknown]
  - Anaemia macrocytic [Unknown]
  - Left ventricular hypertrophy [Unknown]
  - Coronary artery stenosis [Unknown]
  - Ejection fraction decreased [Unknown]
  - Joint swelling [Unknown]
  - Bundle branch block left [Unknown]
  - Rales [Unknown]
  - Skin lesion [Unknown]
  - Ill-defined disorder [Unknown]
  - Physical examination abnormal [Unknown]
  - Pericardial disease [Unknown]
  - Cardiac discomfort [Unknown]
  - Mitral valve disease [Unknown]
  - Left ventricular dysfunction [Unknown]
  - Pulmonary valve disease [Unknown]
  - Echocardiogram abnormal [Unknown]

NARRATIVE: CASE EVENT DATE: 20190918
